FAERS Safety Report 6808774-7 (Version None)
Quarter: 2010Q2

REPORT INFORMATION
  Report Type: 
  Country: None (occurrence: None)
  Receive Date: 20100630
  Receipt Date: 20091001
  Transmission Date: 20101027
  Serious: No
  Sender: FDA-Public Use
  Company Number: US-PFIZER INC-2009268209

PATIENT
  Sex: Male
  Weight: 74.8 kg

DRUGS (1)
  1. VIAGRA [Suspect]
     Dosage: 25 MG, UNK
     Dates: start: 20090907

REACTIONS (2)
  - NAUSEA [None]
  - VOMITING [None]
